FAERS Safety Report 4535004-1 (Version None)
Quarter: 2004Q4

REPORT INFORMATION
  Report Type: 
  Country: None (occurrence: None)
  Receive Date: 20041214
  Receipt Date: 20040810
  Transmission Date: 20050328
  Serious: No
  Sender: FDA-Public Use
  Company Number: USA040874997

PATIENT
  Age: 83 Year
  Sex: Male

DRUGS (6)
  1. CIALIS [Suspect]
     Dosage: 20 MG
     Dates: start: 20031231
  2. PROSCAR [Concomitant]
  3. ASPIRIN [Concomitant]
  4. NEXIUM [Concomitant]
  5. FLEXERIL [Concomitant]
  6. VIAGRA [Concomitant]

REACTIONS (3)
  - DRUG EFFECT PROLONGED [None]
  - HEADACHE [None]
  - MYALGIA [None]
